FAERS Safety Report 11903573 (Version 2)
Quarter: 2016Q1

REPORT INFORMATION
  Report Type: Spontaneous
  Country: US (occurrence: US)
  Receive Date: 20160108
  Receipt Date: 20160219
  Transmission Date: 20160526
  Serious: No
  Sender: FDA-Public Use
  Company Number: US-ASTRAZENECA-2016SE01357

PATIENT
  Age: 78 Year
  Sex: Female
  Weight: 49.4 kg

DRUGS (7)
  1. VITAMIN C [Concomitant]
     Active Substance: ASCORBIC ACID
  2. CALCIUM [Concomitant]
     Active Substance: CALCIUM
  3. VITAMIN B NOS [Concomitant]
     Active Substance: VITAMIN B
  4. SYMBICORT [Suspect]
     Active Substance: BUDESONIDE\FORMOTEROL FUMARATE DIHYDRATE
     Indication: EMPHYSEMA
     Dosage: 160/4.5MCG TWO PUFFS TWICE DAILY
     Route: 055
     Dates: start: 2012
  5. ZOLOFT [Concomitant]
     Active Substance: SERTRALINE HYDROCHLORIDE
  6. TRAZODONE [Concomitant]
     Active Substance: TRAZODONE HYDROCHLORIDE
  7. FISH OIL [Concomitant]
     Active Substance: FISH OIL

REACTIONS (5)
  - Drug dose omission [Unknown]
  - Candida infection [Recovered/Resolved]
  - Gait disturbance [Recovered/Resolved]
  - Device failure [Unknown]
  - Dyspnoea [Recovered/Resolved]

NARRATIVE: CASE EVENT DATE: 2015
